FAERS Safety Report 22344527 (Version 1)
Quarter: 2023Q2

REPORT INFORMATION
  Report Type: Spontaneous
  Country: CA (occurrence: CA)
  Receive Date: 20230519
  Receipt Date: 20230519
  Transmission Date: 20230722
  Serious: Yes (Other)
  Sender: FDA-Public Use
  Company Number: CA-AMERICAN REGENT INC-2023001177

PATIENT

DRUGS (1)
  1. VENOFER [Suspect]
     Active Substance: IRON SUCROSE
     Indication: Product used for unknown indication
     Dosage: 20 MG/ML (100 MG/5 ML), INJ: 5 ML VIAL
     Route: 065
     Dates: start: 20230417, end: 20230417

REACTIONS (8)
  - Painful respiration [Unknown]
  - Livedo reticularis [Unknown]
  - Urticaria [Unknown]
  - Paraesthesia [Unknown]
  - Chest pain [Unknown]
  - Back pain [Unknown]
  - Pain in extremity [Unknown]
  - Product quality issue [Unknown]

NARRATIVE: CASE EVENT DATE: 20230417
